FAERS Safety Report 5706779-0 (Version None)
Quarter: 2008Q2

REPORT INFORMATION
  Report Type: 
  Country: None (occurrence: None)
  Receive Date: 20080415
  Receipt Date: 20080415
  Transmission Date: 20081010
  Serious: No
  Sender: FDA-Public Use
  Company Number: None

PATIENT
  Sex: Female
  Weight: 70.3075 kg

DRUGS (3)
  1. LEXAPRO [Suspect]
     Indication: AGORAPHOBIA
     Dosage: 5 MG QD INJ
  2. LEXAPRO [Suspect]
     Indication: ANXIETY
     Dosage: 5 MG QD INJ
  3. LEXAPRO [Suspect]
     Indication: PANIC ATTACK
     Dosage: 5 MG QD INJ

REACTIONS (1)
  - FEELING ABNORMAL [None]
